FAERS Safety Report 9301450 (Version 1)
Quarter: 2013Q2

REPORT INFORMATION
  Report Type: Spontaneous
  Country: IT (occurrence: IT)
  Receive Date: 20130521
  Receipt Date: 20130521
  Transmission Date: 20140414
  Serious: Yes (Hospitalization)
  Sender: FDA-Public Use
  Company Number: IT-TEVA-406344ISR

PATIENT
  Age: 60 Year
  Sex: Female

DRUGS (2)
  1. LITHIUM [Suspect]
     Indication: BIPOLAR DISORDER
     Dosage: 600 MILLIGRAM DAILY; FOR 15 YEARS
     Route: 065
  2. OLANZAPINE [Concomitant]
     Indication: BIPOLAR DISORDER
     Dosage: 5 MILLIGRAM DAILY; FOR 5 YEARS
     Route: 065

REACTIONS (2)
  - Neurotoxicity [Recovering/Resolving]
  - Toxicity to various agents [Recovering/Resolving]
